FAERS Safety Report 4699746-X (Version None)
Quarter: 2005Q2

REPORT INFORMATION
  Report Type: 
  Country: None (occurrence: None)
  Receive Date: 20050623
  Receipt Date: 20050614
  Transmission Date: 20051028
  Serious: Yes (Death, Life-Threatening)
  Sender: FDA-Public Use
  Company Number: 056-20785-05060215

PATIENT
  Age: 53 Year
  Sex: Female

DRUGS (1)
  1. THALIDOMIDE (THALIDOMIDE) (CAPSULES) [Suspect]
     Indication: LIGHT CHAIN DISEASE
     Dosage: MAXIMUM DOSE OF 200 MG., QD, ORAL
     Route: 048

REACTIONS (5)
  - CONDITION AGGRAVATED [None]
  - DISEASE PROGRESSION [None]
  - DRUG TOXICITY [None]
  - GRAFT VERSUS HOST DISEASE [None]
  - LIGHT CHAIN DISEASE [None]
